FAERS Safety Report 12506779 (Version 2)
Quarter: 2017Q2

REPORT INFORMATION
  Report Type: Report from Study
  Country: US (occurrence: US)
  Receive Date: 20160628
  Receipt Date: 20170504
  Transmission Date: 20170830
  Serious: No
  Sender: FDA-Public Use
  Company Number: US-AMGEN-USASP2016081918

PATIENT
  Age: 51 Year
  Sex: Female

DRUGS (2)
  1. XELJANZ [Concomitant]
     Active Substance: TOFACITINIB CITRATE
     Dosage: UNK
     Dates: end: 201511
  2. ENBREL [Suspect]
     Active Substance: ETANERCEPT
     Indication: RHEUMATOID ARTHRITIS
     Dosage: UNK UNK, EACH WEEK ON SUNDAYS
     Route: 065

REACTIONS (3)
  - Incorrect product storage [Unknown]
  - Hypoacusis [Unknown]
  - Malaise [Unknown]

NARRATIVE: CASE EVENT DATE: 201606
